FAERS Safety Report 14872075 (Version 2)
Quarter: 2018Q2

REPORT INFORMATION
  Report Type: Spontaneous
  Country: FR (occurrence: FR)
  Receive Date: 20180509
  Receipt Date: 20180518
  Transmission Date: 20180711
  Serious: Yes (Life-Threatening, Other)
  Sender: FDA-Public Use
  Company Number: FR-ALLERGAN-1824779US

PATIENT
  Age: 12 Year
  Sex: Female
  Weight: 36 kg

DRUGS (2)
  1. KALINOX [Concomitant]
     Active Substance: NITROUS OXIDE
     Indication: SEDATION
     Dosage: UNK, UNKNOWN
     Route: 055
  2. BOTOX [Suspect]
     Active Substance: ONABOTULINUMTOXINA
     Indication: CEREBRAL PALSY
     Dosage: 200 UNITS, SINGLE
     Route: 030
     Dates: start: 20180418, end: 20180418

REACTIONS (1)
  - Status epilepticus [Recovered/Resolved]

NARRATIVE: CASE EVENT DATE: 20180418
